FAERS Safety Report 13550679 (Version 1)
Quarter: 2017Q2

REPORT INFORMATION
  Report Type: Spontaneous
  Country: US (occurrence: US)
  Receive Date: 20170516
  Receipt Date: 20170516
  Transmission Date: 20170830
  Serious: No
  Sender: FDA-Public Use
  Company Number: None

PATIENT
  Age: 82 Year
  Sex: Male
  Weight: 6.36 kg

DRUGS (9)
  1. LISINOPRIL. [Concomitant]
     Active Substance: LISINOPRIL
  2. VITAMIN D [Concomitant]
     Active Substance: CHOLECALCIFEROL
  3. COSAMIN [Concomitant]
  4. COLON HEALTH [Concomitant]
  5. FINASTERIDE 5MG [Suspect]
     Active Substance: FINASTERIDE
     Indication: NOCTURIA
     Dosage: 1 PER DAY MOUTH?16-AUG-1917
     Route: 048
     Dates: start: 19170816
  6. ASPIRIN. [Concomitant]
     Active Substance: ASPIRIN
  7. ATORVASTATIN [Concomitant]
     Active Substance: ATORVASTATIN
  8. LEVOTHYROXINE. [Concomitant]
     Active Substance: LEVOTHYROXINE
  9. MAGNESIUM [Concomitant]
     Active Substance: MAGNESIUM

REACTIONS (3)
  - Gynaecomastia [None]
  - Breast tenderness [None]
  - Discomfort [None]
